FAERS Safety Report 8016857-1 (Version None)
Quarter: 2012Q1

REPORT INFORMATION
  Report Type: 
  Country: None (occurrence: None)
  Receive Date: 20120102
  Receipt Date: 20111219
  Transmission Date: 20120608
  Serious: Yes (Hospitalization)
  Sender: FDA-Public Use
  Company Number: PHHY2011US03123

PATIENT
  Sex: Female

DRUGS (2)
  1. SANDIMMUNE [Suspect]
     Indication: BLEPHARITIS
     Dosage: 175 MG, QD
     Route: 048
  2. SANDIMMUNE [Suspect]
     Dosage: 25 MG, 7QD
     Route: 048

REACTIONS (8)
  - DEHYDRATION [None]
  - EYELID IRRITATION [None]
  - EYELID MARGIN CRUSTING [None]
  - TREMOR [None]
  - PRURITUS GENERALISED [None]
  - EYE DISORDER [None]
  - EYE SWELLING [None]
  - PHOTOPHOBIA [None]
